FAERS Safety Report 7122222-1 (Version None)
Quarter: 2010Q4

REPORT INFORMATION
  Report Type: 
  Country: None (occurrence: None)
  Receive Date: 20101124
  Receipt Date: 20101117
  Transmission Date: 20110411
  Serious: Yes (Other)
  Sender: FDA-Public Use
  Company Number: US-TEVA-253803USA

PATIENT
  Sex: Male
  Weight: 95.24 kg

DRUGS (2)
  1. CETIRIZINE HCL AND PSEUDOEPHEDRINE HCL [Suspect]
     Indication: SINUS CONGESTION
     Dosage: ONE TABLET, ONCE A DAY
     Route: 048
     Dates: start: 20101024, end: 20101025
  2. VITAMINS [Concomitant]

REACTIONS (4)
  - DISTURBANCE IN ATTENTION [None]
  - FEELING ABNORMAL [None]
  - THINKING ABNORMAL [None]
  - VISUAL IMPAIRMENT [None]
